FAERS Safety Report 5200517-6 (Version None)
Quarter: 2006Q4

REPORT INFORMATION
  Report Type: 
  Country: None (occurrence: None)
  Receive Date: 20061016
  Receipt Date: 20060909
  Transmission Date: 20070319
  Serious: No
  Sender: FDA-Public Use
  Company Number: 2006SP003245

PATIENT
  Age: 61 Year
  Sex: Female
  Weight: 80.5135 kg

DRUGS (7)
  1. LUNESTA [Suspect]
     Indication: INSOMNIA
     Dosage: SEE IMAGE
     Route: 048
     Dates: start: 20050801
  2. METHOCARBAMOL [Concomitant]
  3. HYDROCHLOROTHIAZIDE [Concomitant]
  4. TRAMADOL HCL [Concomitant]
  5. LEVOTHYROXINE SODIUM [Concomitant]
  6. LEXAPRO [Concomitant]
  7. WELLBUTRIN [Concomitant]

REACTIONS (2)
  - INITIAL INSOMNIA [None]
  - SOMNOLENCE [None]
